FAERS Safety Report 4402837-1 (Version None)
Quarter: 2004Q3

REPORT INFORMATION
  Report Type: 
  Country: None (occurrence: None)
  Receive Date: 20040721
  Receipt Date: 20040713
  Transmission Date: 20050211
  Serious: Yes (Other)
  Sender: FDA-Public Use
  Company Number: 200416967GDDC

PATIENT
  Age: 79 Year
  Sex: Female

DRUGS (4)
  1. ARAVA [Suspect]
     Indication: RHEUMATOID ARTHRITIS
     Dosage: DOSE: UNK
     Route: 048
     Dates: start: 20001101, end: 20040601
  2. PREDNISONE [Concomitant]
     Dosage: DOSE: UNK
  3. MS CONTIN [Concomitant]
     Dosage: DOSE: UNK
  4. AMYTAL [Concomitant]
     Dosage: DOSE: UNK

REACTIONS (3)
  - HEPATOMEGALY [None]
  - RASH PRURITIC [None]
  - WHITE BLOOD CELL COUNT DECREASED [None]
